FAERS Safety Report 7907134-5 (Version None)
Quarter: 2011Q4

REPORT INFORMATION
  Report Type: 
  Country: None (occurrence: None)
  Receive Date: 20111110
  Receipt Date: 20110803
  Transmission Date: 20120403
  Serious: Yes (Other)
  Sender: FDA-Public Use
  Company Number: US-ASTRAZENECA-2011SE46922

PATIENT

DRUGS (8)
  1. LISINOPRIL [Suspect]
     Route: 048
  2. KLONOPIN [Concomitant]
     Dosage: ONE TO THREE TIMES EVERY DAY
     Route: 048
  3. METOPROLOL TARTRATE [Concomitant]
     Route: 048
  4. DISULFIRAM [Concomitant]
     Route: 048
  5. MULTI-VITAMINS [Concomitant]
     Dosage: ONE TABLET EVERY DAY WITH FOOD
  6. SEROQUEL [Concomitant]
     Route: 048
  7. ACETAMINOPHEN AND HYDROCODONE BITARTRATE [Concomitant]
     Indication: PAIN
     Dosage: 5MG-325MG, TAKE TWO TABLETS EVERY 4 TO 6 HOURS AS NEEDED
     Route: 048
  8. LEXAPRO [Concomitant]
     Route: 048

REACTIONS (2)
  - DRUG HYPERSENSITIVITY [None]
  - ANGIOEDEMA [None]
